FAERS Safety Report 18221479 (Version 3)
Quarter: 2020Q4

REPORT INFORMATION
  Report Type: Spontaneous
  Country: US (occurrence: US)
  Receive Date: 20200902
  Receipt Date: 20201020
  Transmission Date: 20210113
  Serious: No
  Sender: FDA-Public Use
  Company Number: US-PFIZER INC-2020338156

PATIENT
  Age: 75 Year
  Sex: Female

DRUGS (1)
  1. SUTENT [Suspect]
     Active Substance: SUNITINIB MALATE
     Dosage: 25 MG, CYCLIC (1 CAPSULE DAILY MONDAY/WEDNESDAY/ FRIDAY FOR 14 DAYS THEN 14 DAYS OFF)
     Route: 048

REACTIONS (3)
  - Neoplasm progression [Unknown]
  - Diarrhoea [Recovering/Resolving]
  - Off label use [Unknown]
